FAERS Safety Report 16697663 (Version 2)
Quarter: 2019Q3

REPORT INFORMATION
  Report Type: Spontaneous
  Country: US (occurrence: US)
  Receive Date: 20190813
  Receipt Date: 20190829
  Transmission Date: 20191004
  Serious: No
  Sender: FDA-Public Use
  Company Number: US-009507513-1907USA010808

PATIENT
  Age: 14 Year
  Sex: Female

DRUGS (1)
  1. ASMANEX [Suspect]
     Active Substance: MOMETASONE FUROATE
     Dosage: 1 PUFF DAILY

REACTIONS (6)
  - Physical product label issue [Unknown]
  - Product quality issue [Unknown]
  - Product dose omission [Unknown]
  - No adverse event [Unknown]
  - Poor quality device used [Unknown]
  - Product label confusion [Unknown]

NARRATIVE: CASE EVENT DATE: 20190713
